FAERS Safety Report 18144385 (Version 1)
Quarter: 2020Q3

REPORT INFORMATION
  Report Type: Report from Study
  Country: None (occurrence: US)
  Receive Date: 20200813
  Receipt Date: 20200813
  Transmission Date: 20201103
  Serious: No
  Sender: FDA-Public Use
  Company Number: US-BIOVITRUM-2020US2249

PATIENT
  Age: 51 Year
  Sex: Female

DRUGS (3)
  1. KINERET [Suspect]
     Active Substance: ANAKINRA
     Indication: AUTOIMMUNE DISORDER
  2. KINERET [Suspect]
     Active Substance: ANAKINRA
     Indication: POLYCHONDRITIS
     Route: 058
     Dates: start: 20200428
  3. PREDNISONE. [Concomitant]
     Active Substance: PREDNISONE

REACTIONS (6)
  - Fatigue [Unknown]
  - Viral infection [Unknown]
  - Off label use [Not Recovered/Not Resolved]
  - Tinnitus [Recovered/Resolved]
  - Injection site discolouration [Unknown]
  - Ear pain [Unknown]

NARRATIVE: CASE EVENT DATE: 20200428
